FAERS Safety Report 14955156 (Version 1)
Quarter: 2018Q2

REPORT INFORMATION
  Report Type: Spontaneous
  Country: US (occurrence: US)
  Receive Date: 20180531
  Receipt Date: 20180531
  Transmission Date: 20180711
  Serious: Yes (Other)
  Sender: FDA-Public Use
  Company Number: US-BEH-2018091131

PATIENT
  Sex: Female
  Weight: 61.22 kg

DRUGS (14)
  1. HIZENTRA [Suspect]
     Active Substance: HUMAN IMMUNOGLOBULIN G
     Indication: IMMUNODEFICIENCY COMMON VARIABLE
     Dosage: 16 G, QOW
     Route: 058
     Dates: start: 20160128
  2. ACETAMINOPHEN. [Concomitant]
     Active Substance: ACETAMINOPHEN
  3. EPINEPHRINE. [Concomitant]
     Active Substance: EPINEPHRINE
     Route: 065
  4. CYMBALTA [Concomitant]
     Active Substance: DULOXETINE HYDROCHLORIDE
  5. ESTRADIOL. [Concomitant]
     Active Substance: ESTRADIOL
     Route: 065
  6. ASPIRIN. [Concomitant]
     Active Substance: ASPIRIN
  7. AMBIEN [Concomitant]
     Active Substance: ZOLPIDEM TARTRATE
  8. AMOXICILLIN AND CLAVULANATE POTASSIUM [Concomitant]
     Active Substance: AMOXICILLIN\CLAVULANATE POTASSIUM
  9. DIPHENHYDRAMINE. [Concomitant]
     Active Substance: DIPHENHYDRAMINE
  10. SIMVASTATIN. [Concomitant]
     Active Substance: SIMVASTATIN
  11. DULERA [Concomitant]
     Active Substance: FORMOTEROL FUMARATE DIHYDRATE\MOMETASONE FUROATE
  12. LMX                                /00033401/ [Concomitant]
  13. RESTASIS [Concomitant]
     Active Substance: CYCLOSPORINE
  14. SYNTHROID [Concomitant]
     Active Substance: LEVOTHYROXINE SODIUM

REACTIONS (3)
  - Fatigue [Unknown]
  - Somnolence [Unknown]
  - Pulmonary oedema [Unknown]
